FAERS Safety Report 24139037 (Version 3)
Quarter: 2024Q4

REPORT INFORMATION
  Report Type: Spontaneous
  Country: JP (occurrence: JP)
  Receive Date: 20240726
  Receipt Date: 20241028
  Transmission Date: 20250115
  Serious: Yes (Other)
  Sender: MERCK
  Company Number: JP-MSD-2407JPN003471J

PATIENT
  Sex: Female

DRUGS (1)
  1. KEYTRUDA [Suspect]
     Active Substance: PEMBROLIZUMAB
     Indication: Cervix carcinoma
     Dosage: UNK
     Route: 065

REACTIONS (3)
  - Febrile neutropenia [Recovering/Resolving]
  - Skin disorder [Recovering/Resolving]
  - Diarrhoea [Recovering/Resolving]
